FAERS Safety Report 4922090-X (Version None)
Quarter: 2006Q1

REPORT INFORMATION
  Report Type: 
  Country: None (occurrence: None)
  Receive Date: 20060222
  Receipt Date: 20060222
  Transmission Date: 20060701
  Serious: Yes (Hospitalization)
  Sender: FDA-Public Use
  Company Number: None

PATIENT
  Age: 87 Year
  Sex: Female
  Weight: 50.3493 kg

DRUGS (18)
  1. DIAZEPAM [Suspect]
     Indication: SEDATION
     Dosage: 50 MG PO OTO
     Dates: start: 20051018
  2. DIPHENHYDRAMINE [Suspect]
     Indication: SEDATION
     Dosage: 50 MG PO OTO
     Dates: start: 20051018
  3. LOSARTAN POTASSIUM [Concomitant]
  4. PLAVIX [Concomitant]
  5. LIPITOR [Concomitant]
  6. TOPROL-XL [Concomitant]
  7. NITROGLYCERIN [Concomitant]
  8. AMBIEN [Concomitant]
  9. ASPIRIN [Concomitant]
  10. IMDUR [Concomitant]
  11. SYNTHROID [Concomitant]
  12. ZANTAC [Concomitant]
  13. HYDROCHLOROTHIAZIDE [Concomitant]
  14. FOSAMAX [Concomitant]
  15. M.V.I. [Concomitant]
  16. POTASSIUM CHLORIDE [Concomitant]
  17. OSCAL [Concomitant]
  18. NA BICARB DRIP [Concomitant]

REACTIONS (13)
  - BLOOD BICARBONATE INCREASED [None]
  - BLOOD CREATININE INCREASED [None]
  - BLOOD PRESSURE INCREASED [None]
  - CARDIAC FAILURE CONGESTIVE [None]
  - CARDIAC PACEMAKER INSERTION [None]
  - FLUID OVERLOAD [None]
  - LOSS OF CONSCIOUSNESS [None]
  - OXYGEN SATURATION DECREASED [None]
  - PULMONARY OEDEMA [None]
  - RESPIRATORY DISTRESS [None]
  - SEDATION [None]
  - TACHYPNOEA [None]
  - WHEEZING [None]
